FAERS Safety Report 5124597-1 (Version None)
Quarter: 2006Q4

REPORT INFORMATION
  Report Type: 
  Country: None (occurrence: None)
  Receive Date: 20061011
  Receipt Date: 20061006
  Transmission Date: 20070319
  Serious: Yes (Death, Hospitalization)
  Sender: FDA-Public Use
  Company Number: IT-JNJFOC-20061001632

PATIENT
  Sex: Female
  Weight: 90 kg

DRUGS (2)
  1. CAELYX [Suspect]
     Indication: BREAST CANCER METASTATIC
     Route: 042
  2. TAXOTERE [Suspect]
     Indication: BREAST CANCER METASTATIC
     Route: 042

REACTIONS (5)
  - COMA [None]
  - NEUTROPENIA [None]
  - PULMONARY OEDEMA [None]
  - PYREXIA [None]
  - SEPSIS [None]
